FAERS Safety Report 6268699-5 (Version None)
Quarter: 2009Q3

REPORT INFORMATION
  Report Type: 
  Country: None (occurrence: None)
  Receive Date: 20090714
  Receipt Date: 20090714
  Transmission Date: 20100115
  Serious: Yes (Other)
  Sender: FDA-Public Use
  Company Number: None

PATIENT
  Age: 66 Year
  Sex: Female
  Weight: 71.2147 kg

DRUGS (1)
  1. MIACALCIN [Suspect]
     Indication: OSTEOPENIA
     Dosage: ONE SPRAY DAILY NASAL
     Route: 045
     Dates: start: 20041101, end: 20060501

REACTIONS (1)
  - NASAL DISCOMFORT [None]
